FAERS Safety Report 12317035 (Version 1)
Quarter: 2016Q2

REPORT INFORMATION
  Report Type: Spontaneous
  Country: US (occurrence: US)
  Receive Date: 20160429
  Receipt Date: 20160429
  Transmission Date: 20160815
  Serious: No
  Sender: FDA-Public Use
  Company Number: US-TEVA-581217USA

PATIENT
  Sex: Male

DRUGS (1)
  1. THEOPHYLLINE [Suspect]
     Active Substance: THEOPHYLLINE ANHYDROUS
     Indication: ASTHMA
     Dates: start: 20150720, end: 20150721

REACTIONS (4)
  - Pharyngeal oedema [Unknown]
  - Dyspnoea [Unknown]
  - Urticaria [Unknown]
  - Swollen tongue [Unknown]
